FAERS Safety Report 7219466-7 (Version None)
Quarter: 2011Q1

REPORT INFORMATION
  Report Type: 
  Country: None (occurrence: None)
  Receive Date: 20110111
  Receipt Date: 20101228
  Transmission Date: 20110831
  Serious: Yes (Other)
  Sender: FDA-Public Use
  Company Number: JP-TYCO HEALTHCARE/MALLINCKRODT-T201002431

PATIENT
  Age: 62 Year
  Sex: Male

DRUGS (4)
  1. OPTIRAY 350 [Suspect]
     Indication: COMPUTERISED TOMOGRAM
     Dosage: 98 ML, SINGLE
     Route: 042
     Dates: start: 20101215, end: 20101215
  2. INSULIN HUMAN [Concomitant]
     Indication: TYPE 1 DIABETES MELLITUS
     Dosage: 6 UNITS TID
     Route: 058
  3. LEVOTHYROXINE SODIUM [Concomitant]
     Indication: HYPOTHYROIDISM
     Dosage: 50 MG, BID
     Route: 048
  4. INSULIN DETEMIR [Concomitant]
     Indication: TYPE 1 DIABETES MELLITUS
     Dosage: 6 UNITS IN MORNING, 9 UNITS IN EVENING
     Route: 058

REACTIONS (7)
  - ERYTHEMA [None]
  - PAIN [None]
  - SNEEZING [None]
  - BLOOD PRESSURE DECREASED [None]
  - DYSPNOEA [None]
  - RASH [None]
  - HYPOAESTHESIA ORAL [None]
